FAERS Safety Report 5894080-4 (Version None)
Quarter: 2008Q3

REPORT INFORMATION
  Report Type: 
  Country: None (occurrence: None)
  Receive Date: 20080923
  Receipt Date: 20071213
  Transmission Date: 20090109
  Serious: No
  Sender: FDA-Public Use
  Company Number: US-ASTRAZENECA-2007UW28375

PATIENT
  Age: 42 Year
  Sex: Female
  Weight: 51.7 kg

DRUGS (3)
  1. SEROQUEL XR [Suspect]
     Indication: BIPOLAR I DISORDER
     Route: 048
     Dates: start: 20071210
  2. SEROQUEL XR [Suspect]
     Route: 048
     Dates: start: 20071212
  3. COLACE [Concomitant]

REACTIONS (2)
  - BREAST ENGORGEMENT [None]
  - BREAST TENDERNESS [None]
